FAERS Safety Report 5410228-X (Version None)
Quarter: 2007Q3

REPORT INFORMATION
  Report Type: 
  Country: None (occurrence: None)
  Receive Date: 20070713
  Receipt Date: 20070416
  Transmission Date: 20080115
  Serious: No
  Sender: FDA-Public Use
  Company Number: 2007SP001361

PATIENT
  Age: 88 Year
  Sex: Male
  Weight: 88.4514 kg

DRUGS (4)
  1. LUNESTA [Suspect]
     Indication: INSOMNIA
     Dosage: 2 MG; HS; ORA; 3 MG; HS; ORAL; 9 MG; PRN; ORAL
     Route: 048
     Dates: start: 20070301, end: 20070301
  2. LUNESTA [Suspect]
     Indication: INSOMNIA
     Dosage: 2 MG; HS; ORA; 3 MG; HS; ORAL; 9 MG; PRN; ORAL
     Route: 048
     Dates: start: 20070301
  3. LUNESTA [Suspect]
     Indication: INSOMNIA
     Dosage: 2 MG; HS; ORA; 3 MG; HS; ORAL; 9 MG; PRN; ORAL
     Route: 048
     Dates: start: 20070301
  4. HYDROCODONE BITARTRATE [Concomitant]

REACTIONS (2)
  - CONFUSIONAL STATE [None]
  - INSOMNIA [None]
